FAERS Safety Report 14488294 (Version 2)
Quarter: 2018Q1

REPORT INFORMATION
  Report Type: Spontaneous
  Country: US (occurrence: US)
  Receive Date: 20180205
  Receipt Date: 20180330
  Transmission Date: 20180509
  Serious: Yes (Other)
  Sender: FDA-Public Use
  Company Number: US-TEVA-2018-US-854217

PATIENT
  Age: 64 Year

DRUGS (2)
  1. LOSARTAN. [Suspect]
     Active Substance: LOSARTAN
     Route: 065
  2. LOSARTAN. [Suspect]
     Active Substance: LOSARTAN
     Indication: BLOOD PRESSURE MEASUREMENT
     Dates: start: 2015

REACTIONS (5)
  - Drug ineffective [Unknown]
  - Thoracic vertebral fracture [Unknown]
  - Osteoporosis [Unknown]
  - Blood pressure increased [Unknown]
  - Wrong technique in product usage process [Unknown]
